FAERS Safety Report 25720600 (Version 1)
Quarter: 2025Q3

REPORT INFORMATION
  Report Type: Spontaneous
  Country: EU (occurrence: EU)
  Receive Date: 20250825
  Receipt Date: 20250825
  Transmission Date: 20251021
  Serious: Yes (Other)
  Sender: TEVA
  Company Number: None

PATIENT
  Age: 32 Year
  Sex: Female
  Weight: 62 kg

DRUGS (1)
  1. METOCLOPRAMIDE [Suspect]
     Active Substance: METOCLOPRAMIDE
     Indication: Nausea
     Dosage: 1XDGS, BRAND NAME NOT SPECIFIED
     Route: 048
     Dates: start: 20250726, end: 20250727

REACTIONS (4)
  - Syncope [Recovering/Resolving]
  - Tongue discomfort [Recovering/Resolving]
  - Muscle spasms [Recovering/Resolving]
  - Torticollis [Recovering/Resolving]
